FAERS Safety Report 11026385 (Version 7)
Quarter: 2019Q3

REPORT INFORMATION
  Report Type: Report from Study
  Country: DE (occurrence: DE)
  Receive Date: 20150414
  Receipt Date: 20190730
  Transmission Date: 20191004
  Serious: Yes (Death, Hospitalization, Other)
  Sender: FDA-Public Use
  Company Number: DE-GILEAD-2015-0147566

PATIENT
  Age: 57 Year
  Sex: Male
  Weight: 73 kg

DRUGS (12)
  1. VITAMIN B12 [Concomitant]
     Active Substance: CYANOCOBALAMIN
  2. MOVICOL [Concomitant]
     Active Substance: POLYETHYLENE GLYCOL 3350\POTASSIUM CHLORIDE\SODIUM BICARBONATE\SODIUM CHLORIDE
     Dosage: UNK
     Dates: start: 20150406
  3. CORTISON [Concomitant]
     Active Substance: CORTISONE ACETATE
     Dosage: UNK
  4. LACTULOSE. [Concomitant]
     Active Substance: LACTULOSE
     Dosage: UNK
     Dates: start: 20150406
  5. SPIRONOLACTON [Concomitant]
     Active Substance: SPIRONOLACTONE
  6. LEGALON [Concomitant]
     Active Substance: DIETARY SUPPLEMENT\HERBALS\MILK THISTLE
  7. XIFAXAN [Concomitant]
     Active Substance: RIFAXIMIN
  8. LEVEMIR [Concomitant]
     Active Substance: INSULIN DETEMIR
  9. PANTOPRAZOL [Concomitant]
     Active Substance: PANTOPRAZOLE SODIUM
  10. SOLEDUM [Concomitant]
     Active Substance: EUCALYPTOL
  11. XELEVIA [Concomitant]
     Active Substance: SITAGLIPTIN PHOSPHATE
  12. LEDIPASVIR/SOFOSBUVIR [Suspect]
     Active Substance: LEDIPASVIR\SOFOSBUVIR
     Indication: CHRONIC HEPATITIS C
     Dosage: 90 MG, QD
     Route: 048
     Dates: start: 20150119, end: 20150622

REACTIONS (5)
  - Ileus [Recovering/Resolving]
  - Subileus [Recovering/Resolving]
  - Headache [Recovered/Resolved]
  - Gastrointestinal ischaemia [Fatal]
  - Constipation [Recovering/Resolving]

NARRATIVE: CASE EVENT DATE: 20150128
